FAERS Safety Report 16647452 (Version 1)
Quarter: 2019Q3

REPORT INFORMATION
  Report Type: Spontaneous
  Country: US (occurrence: US)
  Receive Date: 20190729
  Receipt Date: 20190729
  Transmission Date: 20191004
  Serious: Yes (Hospitalization)
  Sender: FDA-Public Use
  Company Number: None

PATIENT
  Age: 60 Year
  Sex: Male

DRUGS (1)
  1. HUMIRA [Suspect]
     Active Substance: ADALIMUMAB
     Indication: PSORIASIS
     Dosage: ?          OTHER FREQUENCY:EVERY 2 WEEKS;?
     Route: 048
     Dates: start: 20170301

REACTIONS (7)
  - Hypotension [None]
  - Alopecia [None]
  - Weight decreased [None]
  - White blood cell count decreased [None]
  - Oropharyngeal pain [None]
  - Acute kidney injury [None]
  - Mouth ulceration [None]

NARRATIVE: CASE EVENT DATE: 20190603
